FAERS Safety Report 24958398 (Version 1)
Quarter: 2025Q1

REPORT INFORMATION
  Report Type: Spontaneous
  Country: GB (occurrence: GB)
  Receive Date: 20250212
  Receipt Date: 20250212
  Transmission Date: 20250408
  Serious: Yes (Disabling, Other)
  Sender: RANBAXY
  Company Number: GB-SUN PHARMACEUTICAL INDUSTRIES LTD-2025RR-493306

PATIENT
  Sex: Female

DRUGS (2)
  1. SERTRALINE [Suspect]
     Active Substance: SERTRALINE HYDROCHLORIDE
     Indication: Adverse drug reaction
     Route: 065
  2. MESALAMINE [Interacting]
     Active Substance: MESALAMINE
     Indication: Adverse drug reaction
     Route: 065

REACTIONS (1)
  - Drug interaction [Recovering/Resolving]

NARRATIVE: CASE EVENT DATE: 20241224
